FAERS Safety Report 12604858 (Version 5)
Quarter: 2020Q2

REPORT INFORMATION
  Report Type: Report from Study
  Country: US (occurrence: US)
  Receive Date: 20160728
  Receipt Date: 20200504
  Transmission Date: 20200713
  Serious: Yes (Hospitalization)
  Sender: FDA-Public Use
  Company Number: US-ALLERGAN-1625227US

PATIENT
  Sex: Female
  Weight: 131.97 kg

DRUGS (9)
  1. BOTULINUM TOXIN TYPE A - GENERAL (9060X) [Suspect]
     Active Substance: BOTULINUM TOXIN TYPE A
     Dosage: 20 UNITS, SINGLE
     Route: 030
     Dates: start: 20150923, end: 20150923
  2. BOTULINUM TOXIN TYPE A - GENERAL (9060X) [Suspect]
     Active Substance: BOTULINUM TOXIN TYPE A
     Dosage: 40 UNITS, SINGLE
     Route: 030
     Dates: start: 20150923, end: 20150923
  3. TENORETIC [Concomitant]
     Active Substance: ATENOLOL\CHLORTHALIDONE
     Indication: HYPERTENSION
     Dosage: UNK
     Route: 048
  4. BOTULINUM TOXIN TYPE A - GENERAL (9060X) [Suspect]
     Active Substance: BOTULINUM TOXIN TYPE A
     Dosage: 100 UNITS, SINGLE
     Route: 030
     Dates: start: 20150923, end: 20150923
  5. BOTULINUM TOXIN TYPE A - GENERAL (9060X) [Suspect]
     Active Substance: BOTULINUM TOXIN TYPE A
     Dosage: 1.5 UNITS, SINGLE
     Route: 030
     Dates: start: 20150923, end: 20150923
  6. BOTULINUM TOXIN TYPE A - GENERAL (9060X) [Suspect]
     Active Substance: BOTULINUM TOXIN TYPE A
     Dosage: UNK UNK, SINGLE
     Route: 030
     Dates: start: 2011, end: 2011
  7. BOTULINUM TOXIN TYPE A - GENERAL (9060X) [Suspect]
     Active Substance: BOTULINUM TOXIN TYPE A
     Dosage: 40 UNITS, SINGLE
     Route: 030
     Dates: start: 20150923, end: 20150923
  8. BOTULINUM TOXIN TYPE A - GENERAL (9060X) [Suspect]
     Active Substance: BOTULINUM TOXIN TYPE A
     Indication: TORTICOLLIS
     Dosage: 300 UNITS, SINGLE
     Route: 030
     Dates: start: 20151223, end: 20151223
  9. BOTULINUM TOXIN TYPE A - GENERAL (9060X) [Suspect]
     Active Substance: BOTULINUM TOXIN TYPE A
     Dosage: 50 UNITS, SINGLE
     Route: 030
     Dates: start: 20150923, end: 20150923

REACTIONS (10)
  - Nasal congestion [Not Recovered/Not Resolved]
  - Productive cough [Not Recovered/Not Resolved]
  - Malaise [Not Recovered/Not Resolved]
  - Respiratory disorder [Unknown]
  - Blood potassium decreased [Recovered/Resolved]
  - Secretion discharge [Not Recovered/Not Resolved]
  - Drug ineffective [Unknown]
  - Pneumonia [Not Recovered/Not Resolved]
  - Upper respiratory tract infection [Not Recovered/Not Resolved]
  - Dyspnoea [Unknown]

NARRATIVE: CASE EVENT DATE: 2015
